FAERS Safety Report 12117474 (Version 1)
Quarter: 2016Q1

REPORT INFORMATION
  Report Type: Report from Study
  Country: PL (occurrence: PL)
  Receive Date: 20160225
  Receipt Date: 20160225
  Transmission Date: 20160526
  Serious: Yes (Hospitalization, Other)
  Sender: FDA-Public Use
  Company Number: PL-SANOFI-AVENTIS-2012SA010659

PATIENT
  Age: 50 Year
  Sex: Female
  Weight: 63.3 kg

DRUGS (7)
  1. TERIFLUNOMIDE [Suspect]
     Active Substance: TERIFLUNOMIDE
     Indication: MULTIPLE SCLEROSIS RELAPSE
     Route: 048
     Dates: start: 20091019
  2. VALSARTAN. [Concomitant]
     Active Substance: VALSARTAN
     Indication: HYPERTENSION
     Route: 048
     Dates: start: 20110620
  3. VIGANTOLETTEN ^BAYER^ [Concomitant]
     Indication: PROPHYLAXIS
     Route: 048
     Dates: start: 20110712
  4. INVESTIGATIONAL DRUG [Concomitant]
     Active Substance: INVESTIGATIONAL PRODUCT
     Indication: AFFECTIVE DISORDER
     Dosage: DOSE:2 UNIT(S)
     Route: 048
     Dates: start: 20110620
  5. TARDYFERON-FOL [Concomitant]
     Indication: ANAEMIA
     Route: 048
     Dates: start: 20100405
  6. NO-SPA [Concomitant]
     Active Substance: DROTAVERINE HYDROCHLORIDE
     Dosage: DOSE:2 UNIT(S)
     Route: 048
  7. SACCHAROMYCES BOULARDII [Concomitant]
     Active Substance: SACCHAROMYCES CEREVISIAE
     Dosage: DOSE:1 UNIT(S)

REACTIONS (2)
  - Pyelonephritis [Recovered/Resolved]
  - Nephrolithiasis [Recovered/Resolved]

NARRATIVE: CASE EVENT DATE: 20120210
